FAERS Safety Report 4746821-7 (Version None)
Quarter: 2005Q3

REPORT INFORMATION
  Report Type: 
  Country: None (occurrence: None)
  Receive Date: 20050817
  Receipt Date: 20050811
  Transmission Date: 20060218
  Serious: Yes (Hospitalization)
  Sender: FDA-Public Use
  Company Number: US-MERCK-0508USA02058

PATIENT
  Sex: Male

DRUGS (3)
  1. INVANZ [Suspect]
     Indication: APPENDICITIS PERFORATED
     Route: 042
     Dates: start: 20050810, end: 20050810
  2. ZOSYN [Concomitant]
     Route: 065
  3. PENICILLIN (UNSPECIFIED) [Concomitant]
     Indication: APPENDICITIS
     Route: 065
     Dates: start: 20050810, end: 20050810

REACTIONS (1)
  - TONGUE DISORDER [None]
